FAERS Safety Report 4969242-0 (Version None)
Quarter: 2006Q2

REPORT INFORMATION
  Report Type: 
  Country: None (occurrence: None)
  Receive Date: 20060405
  Receipt Date: 20060322
  Transmission Date: 20061013
  Serious: Yes (Other)
  Sender: FDA-Public Use
  Company Number: 2006041881

PATIENT
  Age: 64 Year
  Sex: Female
  Weight: 91.173 kg

DRUGS (8)
  1. BENADRYL [Suspect]
     Indication: ANTIBIOTIC PROPHYLAXIS
     Dosage: INTRAVENOUS
     Route: 042
  2. BENADRYL [Suspect]
     Indication: ILL-DEFINED DISORDER
     Dosage: INTRAVENOUS
     Route: 042
  3. CIPRO [Concomitant]
  4. ARICEPT [Concomitant]
  5. INSULIN [Concomitant]
  6. LIPITOR (ATORVASTATIN) [Concomitant]
  7. CISPLATIN [Concomitant]
  8. SALBUTAMOL [Concomitant]

REACTIONS (10)
  - COUGH [None]
  - DRUG INEFFECTIVE [None]
  - DYSPNOEA [None]
  - FEELING ABNORMAL [None]
  - HEADACHE [None]
  - PRURITUS [None]
  - PRURITUS GENERALISED [None]
  - RESPIRATORY ARREST [None]
  - SPEECH DISORDER [None]
  - THROAT TIGHTNESS [None]
